FAERS Safety Report 6300574-X (Version None)
Quarter: 2009Q3

REPORT INFORMATION
  Report Type: 
  Country: None (occurrence: None)
  Receive Date: 20090806
  Receipt Date: 20090514
  Transmission Date: 20100115
  Serious: No
  Sender: FDA-Public Use
  Company Number: US-ABBOTT-09P-163-0573737-00

PATIENT
  Sex: Male
  Weight: 95.34 kg

DRUGS (4)
  1. DEPAKOTE ER [Suspect]
     Indication: MIGRAINE
     Route: 048
     Dates: start: 20070701, end: 20090407
  2. DEPAKOTE ER [Suspect]
     Route: 048
     Dates: start: 20090408, end: 20090504
  3. LODINE [Concomitant]
     Indication: MIGRAINE
     Dosage: UNKNOWN
     Route: 048
  4. UNKNOWN BLOOD PRESSURE PILL [Concomitant]
     Indication: HYPERTENSION
     Dosage: UNKNOWN
     Route: 048

REACTIONS (3)
  - DYSKINESIA [None]
  - HYPONATRAEMIA [None]
  - TREMOR [None]
